FAERS Safety Report 8476103-1 (Version None)
Quarter: 2012Q2

REPORT INFORMATION
  Report Type: 
  Country: None (occurrence: None)
  Receive Date: 20120628
  Receipt Date: 20120619
  Transmission Date: 20120825
  Serious: Yes (Disabling)
  Sender: FDA-Public Use
  Company Number: ES-SANOFI-AVENTIS-2011SA033573

PATIENT
  Age: 34 Year
  Sex: Female

DRUGS (3)
  1. ARAVA [Suspect]
     Route: 048
     Dates: end: 20110525
  2. HYDROXYCHLOROQUINE SULFATE [Concomitant]
     Dates: end: 20110525
  3. LEVOTHROID [Concomitant]

REACTIONS (2)
  - ABNORMAL PRODUCT OF CONCEPTION [None]
  - MATERNAL EXPOSURE DURING PREGNANCY [None]
